FAERS Safety Report 20159453 (Version 1)
Quarter: 2021Q4

REPORT INFORMATION
  Report Type: Spontaneous
  Country: NG (occurrence: None)
  Receive Date: 20211208
  Receipt Date: 20211208
  Transmission Date: 20220303
  Serious: Yes (Death, Hospitalization)
  Sender: FDA-Public Use
  Company Number: NG-ROCHE-2974561

PATIENT
  Age: 67 Year

DRUGS (4)
  1. MABTHERA [Suspect]
     Active Substance: RITUXIMAB
     Indication: Non-Hodgkin^s lymphoma
     Route: 041
  2. MABTHERA [Suspect]
     Active Substance: RITUXIMAB
     Route: 041
  3. MABTHERA [Suspect]
     Active Substance: RITUXIMAB
     Indication: Non-Hodgkin^s lymphoma
     Route: 058
  4. CYCLOPHOSPHAMIDE\DOXORUBICIN\PREDNISONE\VINCRISTINE [Concomitant]
     Active Substance: CYCLOPHOSPHAMIDE\DOXORUBICIN\PREDNISONE\VINCRISTINE

REACTIONS (4)
  - Diarrhoea [Unknown]
  - Heart rate decreased [Unknown]
  - Urinary retention [Unknown]
  - Death [Fatal]

NARRATIVE: CASE EVENT DATE: 20211118
